FAERS Safety Report 7255277-4 (Version None)
Quarter: 2011Q1

REPORT INFORMATION
  Report Type: 
  Country: None (occurrence: None)
  Receive Date: 20110129
  Receipt Date: 20100302
  Transmission Date: 20110831
  Serious: No
  Sender: FDA-Public Use
  Company Number: US-ABBOTT-10P-163-0630239-00

PATIENT
  Age: 38 Year
  Sex: Male

DRUGS (1)
  1. HUMIRA [Suspect]
     Indication: PSORIASIS
     Route: 058
     Dates: start: 20090801

REACTIONS (5)
  - BLISTER [None]
  - URTICARIA [None]
  - EAR HAEMORRHAGE [None]
  - LYMPHADENOPATHY [None]
  - AURICULAR SWELLING [None]
